FAERS Safety Report 5728013-8 (Version None)
Quarter: 2008Q2

REPORT INFORMATION
  Report Type: 
  Country: None (occurrence: None)
  Receive Date: 20080505
  Receipt Date: 20080409
  Transmission Date: 20081010
  Serious: No
  Sender: FDA-Public Use
  Company Number: US-BOEHRINGER INGELHEIM GMBH, GERMANY-2008-BP-05568BP

PATIENT
  Age: 7 Decade
  Sex: Male

DRUGS (4)
  1. SPIRIVA [Suspect]
     Indication: CHRONIC OBSTRUCTIVE PULMONARY DISEASE
  2. ZOCOR [Concomitant]
  3. ASPIRIN [Concomitant]
  4. ADVAIR HFA [Concomitant]

REACTIONS (1)
  - DYSKINESIA [None]
